FAERS Safety Report 5063384-X (Version None)
Quarter: 2006Q3

REPORT INFORMATION
  Report Type: 
  Country: None (occurrence: None)
  Receive Date: 20060727
  Receipt Date: 20060720
  Transmission Date: 20061208
  Serious: Yes (Other)
  Sender: FDA-Public Use
  Company Number: PHEH2006US09334

PATIENT

DRUGS (2)
  1. DIOVAN [Suspect]
     Dosage: UNK MG, UNK
     Route: 048
  2. DIOVAN [Suspect]
     Route: 048

REACTIONS (2)
  - AGEUSIA [None]
  - ANOSMIA [None]
